FAERS Safety Report 6140928-8 (Version None)
Quarter: 2009Q2

REPORT INFORMATION
  Report Type: 
  Country: None (occurrence: None)
  Receive Date: 20090402
  Receipt Date: 20090326
  Transmission Date: 20091009
  Serious: Yes (Other)
  Sender: FDA-Public Use
  Company Number: AU-ASTRAZENECA-2009AP01028

PATIENT
  Age: 83 Year
  Sex: Female

DRUGS (8)
  1. CRESTOR [Suspect]
     Route: 048
  2. PLENDIL [Concomitant]
  3. MICARDIS [Concomitant]
  4. LASIX [Concomitant]
  5. TENORMIN [Concomitant]
  6. ASPIRIN [Concomitant]
  7. PARACETAMOL [Concomitant]
  8. DIAZEPAM [Concomitant]

REACTIONS (1)
  - AMYLOIDOSIS [None]
